FAERS Safety Report 4641128-0 (Version None)
Quarter: 2005Q2

REPORT INFORMATION
  Report Type: 
  Country: None (occurrence: None)
  Receive Date: 20050419
  Receipt Date: 20050419
  Transmission Date: 20051028
  Serious: Yes (Life-Threatening, Other)
  Sender: FDA-Public Use
  Company Number: None

PATIENT
  Age: 14 Year
  Sex: Male
  Weight: 70.3075 kg

DRUGS (2)
  1. ZOLOFT [Suspect]
     Indication: DEPRESSION
     Dosage: ONCE DAILY
     Dates: start: 20040908, end: 20050330
  2. ZOLOFT [Suspect]
     Indication: OBSESSIVE-COMPULSIVE DISORDER
     Dosage: ONCE DAILY
     Dates: start: 20040908, end: 20050330

REACTIONS (3)
  - AGGRESSION [None]
  - AGITATION [None]
  - CRYING [None]
